FAERS Safety Report 18623803 (Version 1)
Quarter: 2020Q4

REPORT INFORMATION
  Report Type: Spontaneous
  Country: DE (occurrence: DE)
  Receive Date: 20201216
  Receipt Date: 20201216
  Transmission Date: 20210114
  Serious: Yes (Other)
  Sender: FDA-Public Use
  Company Number: DE-INSUD PHARMA-2012DE00275

PATIENT

DRUGS (1)
  1. PROGESTERONE. [Suspect]
     Active Substance: PROGESTERONE
     Indication: MENSTRUAL DISORDER
     Dosage: 200 MG, UNKNOWN
     Route: 048
     Dates: start: 20200820, end: 2020

REACTIONS (3)
  - Visual impairment [Recovering/Resolving]
  - Vitreous haemorrhage [Recovered/Resolved]
  - Vision blurred [Recovering/Resolving]

NARRATIVE: CASE EVENT DATE: 202008
